FAERS Safety Report 21406222 (Version 3)
Quarter: 2022Q4

REPORT INFORMATION
  Report Type: Report from Study
  Country: US (occurrence: US)
  Receive Date: 20221004
  Receipt Date: 20221222
  Transmission Date: 20230113
  Serious: No
  Sender: FDA-Public Use
  Company Number: US-NOVARTISTESTPH-NVSC2022US223596

PATIENT
  Age: 65 Year
  Sex: Female

DRUGS (1)
  1. KESIMPTA [Suspect]
     Active Substance: OFATUMUMAB
     Indication: Product used for unknown indication
     Dosage: 20 MG, QMO (OTHER DOSAGE 4ML)
     Route: 058
     Dates: start: 20210915, end: 20221003

REACTIONS (4)
  - Fall [Unknown]
  - Alopecia [Unknown]
  - Lower limb fracture [Unknown]
  - Device leakage [Unknown]

NARRATIVE: CASE EVENT DATE: 20220915
